FAERS Safety Report 9337749 (Version 2)
Quarter: 2013Q3

REPORT INFORMATION
  Report Type: Spontaneous
  Country: DE (occurrence: DE)
  Receive Date: 20130607
  Receipt Date: 20130702
  Transmission Date: 20140515
  Serious: Yes (Hospitalization)
  Sender: FDA-Public Use
  Company Number: DE-B.I. PHARMACEUTICALS,INC./RIDGEFIELD-2013-DE-01530DE

PATIENT
  Sex: Female
  Weight: 95 kg

DRUGS (1)
  1. PRADAXA [Suspect]
     Indication: ATRIAL FIBRILLATION
     Dosage: 220 NR
     Dates: start: 20121205, end: 201304

REACTIONS (5)
  - Jaundice [Recovered/Resolved]
  - Toxicity to various agents [Recovered/Resolved]
  - Nausea [Recovered/Resolved]
  - Chromaturia [Recovered/Resolved]
  - Faeces pale [Recovered/Resolved]
